FAERS Safety Report 16797620 (Version 2)
Quarter: 2020Q1

REPORT INFORMATION
  Report Type: Spontaneous
  Country: US (occurrence: US)
  Receive Date: 20190912
  Receipt Date: 20200127
  Transmission Date: 20200409
  Serious: No
  Sender: FDA-Public Use
  Company Number: US-TEVA-2019-US-1107039

PATIENT
  Sex: Female

DRUGS (1)
  1. AJOVY [Suspect]
     Active Substance: FREMANEZUMAB-VFRM
     Indication: MIGRAINE
     Dosage: 225MG, ONE INJECTION MONTHLY, THIRD INJECTION WAS DUE SOON

REACTIONS (4)
  - Injection site pain [Recovered/Resolved]
  - Lip blister [Unknown]
  - Lip swelling [Unknown]
  - Injection site swelling [Recovered/Resolved]
